FAERS Safety Report 6290146-8 (Version None)
Quarter: 2009Q3

REPORT INFORMATION
  Report Type: 
  Country: None (occurrence: None)
  Receive Date: 20090730
  Receipt Date: 20081210
  Transmission Date: 20100115
  Serious: No
  Sender: FDA-Public Use
  Company Number: US-BRISTOL-MYERS SQUIBB COMPANY-14438519

PATIENT
  Age: 83 Year
  Sex: Male
  Weight: 75 kg

DRUGS (15)
  1. COUMADIN [Suspect]
     Indication: MITRAL VALVE REPLACEMENT
     Dosage: 1 DOSAGEFORM =5MG, 5 TIMES A WK AND 2.5MG TWO TIMES A WEEK FOR 5 YEARS
  2. COUMADIN [Suspect]
     Indication: TRANSIENT ISCHAEMIC ATTACK
     Dosage: 1 DOSAGEFORM =5MG, 5 TIMES A WK AND 2.5MG TWO TIMES A WEEK FOR 5 YEARS
  3. LUPRON [Concomitant]
  4. IMDUR [Concomitant]
  5. LASIX [Concomitant]
  6. PRILOSEC [Concomitant]
  7. POTASSIUM CHLORIDE [Concomitant]
  8. FOSAMAX [Concomitant]
  9. XOPENEX [Concomitant]
  10. AEROBID [Concomitant]
  11. MULTI-VITAMIN [Concomitant]
  12. CALCIUM [Concomitant]
  13. MAGNESIUM [Concomitant]
  14. ASCORBIC ACID [Concomitant]
  15. SELENIUM [Concomitant]

REACTIONS (1)
  - INTERNATIONAL NORMALISED RATIO DECREASED [None]
